FAERS Safety Report 5551770-0 (Version None)
Quarter: 2007Q4

REPORT INFORMATION
  Report Type: 
  Country: None (occurrence: None)
  Receive Date: 20071212
  Receipt Date: 20071130
  Transmission Date: 20080405
  Serious: Yes (Other)
  Sender: FDA-Public Use
  Company Number: JP-PFIZER INC-2007099621

PATIENT
  Sex: Female

DRUGS (3)
  1. ZOLOFT [Suspect]
     Dosage: DAILY DOSE:50MG
     Route: 048
     Dates: start: 20071009, end: 20071101
  2. HALCION [Concomitant]
     Route: 048
  3. FERROMIA [Concomitant]
     Route: 048

REACTIONS (2)
  - ABORTION SPONTANEOUS [None]
  - MENORRHAGIA [None]
